FAERS Safety Report 9474143 (Version 1)
Quarter: 2013Q3

REPORT INFORMATION
  Report Type: Spontaneous
  Country: GB (occurrence: GB)
  Receive Date: 20130823
  Receipt Date: 20130823
  Transmission Date: 20140515
  Serious: Yes (Congenital Anomaly)
  Sender: FDA-Public Use
  Company Number: GB-WATSON-2013-15173

PATIENT
  Sex: Female

DRUGS (2)
  1. FOLIC ACID (UNKNOWN) [Suspect]
     Indication: SUPPLEMENTATION THERAPY
     Route: 064
  2. LAMOTRIGINE (UNKNOWN) [Suspect]
     Indication: EPILEPSY
     Dosage: 225 MG, BID
     Route: 064
     Dates: start: 201107, end: 201207

REACTIONS (4)
  - Benign congenital hypotonia [Unknown]
  - Exposure during breast feeding [Unknown]
  - Foetal exposure during pregnancy [Unknown]
  - Developmental delay [Unknown]
